FAERS Safety Report 18086771 (Version 1)
Quarter: 2020Q3

REPORT INFORMATION
  Report Type: Spontaneous
  Country: US (occurrence: US)
  Receive Date: 20200729
  Receipt Date: 20200729
  Transmission Date: 20201103
  Serious: No
  Sender: FDA-Public Use
  Company Number: US-PFIZER INC-2020286054

PATIENT
  Age: 77 Year
  Sex: Male
  Weight: 82.55 kg

DRUGS (6)
  1. TOVIAZ [Suspect]
     Active Substance: FESOTERODINE FUMARATE
     Indication: POLLAKIURIA
  2. HYDROCODONE [Concomitant]
     Active Substance: HYDROCODONE
     Indication: SPINAL STENOSIS
     Dosage: 5 MG, AS NEEDED (3?4 TIMES PER DAY AS NEEDED)
  3. CARVEDILOL. [Concomitant]
     Active Substance: CARVEDILOL
     Dosage: UNK
  4. WARFARIN [Concomitant]
     Active Substance: WARFARIN
     Indication: ANTICOAGULANT THERAPY
     Dosage: 5 MG, 2X/WEEK (5MG. TWO DAYS A WEEK. THE OTHER 5 DAYS, HE TAKES 2.5 MG)
  5. TOVIAZ [Suspect]
     Active Substance: FESOTERODINE FUMARATE
     Indication: PROSTATIC DISORDER
     Dosage: 8 MG, DAILY, [8MG ER TABLETS. ONE TABLET DAILY BY MOUTH]
     Route: 048
  6. WARFARIN [Concomitant]
     Active Substance: WARFARIN
     Dosage: 2.5 MG, (THE OTHER 5 DAYS, HE TAKES 2.5 MG.)

REACTIONS (1)
  - Therapeutic product effect incomplete [Unknown]
